FAERS Safety Report 22140015 (Version 1)
Quarter: 2023Q1

REPORT INFORMATION
  Report Type: Spontaneous
  Country: US (occurrence: None)
  Receive Date: 20230324
  Receipt Date: 20230324
  Transmission Date: 20230418
  Serious: Yes (Hospitalization)
  Sender: FDA-Public Use
  Company Number: None

PATIENT
  Age: 31 Year
  Sex: Male
  Weight: 67.5 kg

DRUGS (6)
  1. HERBALS\MITRAGYNINE [Suspect]
     Active Substance: HERBALS\MITRAGYNINE
     Indication: Substance use
     Dosage: FREQUENCY : AS NEEDED;?
     Route: 048
  2. LEXAPRO [Concomitant]
     Active Substance: ESCITALOPRAM OXALATE
  3. Multi-vitamin (Men^s 1 a day) [Concomitant]
  4. VITAMIN C [Concomitant]
     Active Substance: ASCORBIC ACID
  5. liquid IV [Concomitant]
  6. caffeine powdered beverages [Concomitant]

REACTIONS (7)
  - Drug dependence [None]
  - Economic problem [None]
  - Depression [None]
  - Apathy [None]
  - Weight decreased [None]
  - Appetite disorder [None]
  - Lethargy [None]

NARRATIVE: CASE EVENT DATE: 20230225
